FAERS Safety Report 16587778 (Version 1)
Quarter: 2019Q3

REPORT INFORMATION
  Report Type: Spontaneous
  Country: PL (occurrence: PL)
  Receive Date: 20190717
  Receipt Date: 20190717
  Transmission Date: 20191004
  Serious: Yes (Other)
  Sender: FDA-Public Use
  Company Number: PL-ALLERGAN-1929142US

PATIENT
  Sex: Female

DRUGS (4)
  1. ESTROFEM [Concomitant]
     Indication: PRODUCT USED FOR UNKNOWN INDICATION
     Route: 065
  2. EUTHYROX [Concomitant]
     Active Substance: LEVOTHYROXINE SODIUM
     Indication: PRODUCT USED FOR UNKNOWN INDICATION
  3. CONCOR COR [Concomitant]
     Active Substance: BISOPROLOL FUMARATE
  4. FOSFOMYCIN TROMETHAMINE - BP [Suspect]
     Active Substance: FOSFOMYCIN TROMETHAMINE
     Indication: WHITE BLOOD CELLS URINE POSITIVE
     Route: 065

REACTIONS (9)
  - Disturbance in attention [Unknown]
  - Dyspnoea [Unknown]
  - Dysgeusia [Unknown]
  - Dizziness [Unknown]
  - Fatigue [Unknown]
  - Asthenia [Unknown]
  - Dyspepsia [Unknown]
  - Malaise [Unknown]
  - Decreased appetite [Unknown]
